FAERS Safety Report 9730747 (Version 3)
Quarter: 2013Q4

REPORT INFORMATION
  Report Type: Report from Study
  Country: AU (occurrence: AU)
  Receive Date: 20131205
  Receipt Date: 20131224
  Transmission Date: 20140711
  Serious: Yes (Death, Hospitalization, Other)
  Sender: FDA-Public Use
  Company Number: AU-ROCHE-1307633

PATIENT
  Age: 48 Year
  Sex: Female
  Weight: 60 kg

DRUGS (2)
  1. AVASTIN [Suspect]
     Indication: OVARIAN CANCER
     Route: 042
     Dates: start: 201305, end: 20131111
  2. CYCLOPHOSPHAMIDE [Concomitant]
     Indication: OVARIAN CANCER
     Route: 048

REACTIONS (5)
  - Intestinal perforation [Fatal]
  - Peritonitis [Unknown]
  - Ascites [Unknown]
  - Ovarian cancer [Unknown]
  - Vomiting [Unknown]
